FAERS Safety Report 20207037 (Version 1)
Quarter: 2021Q4

REPORT INFORMATION
  Report Type: Spontaneous
  Country: FR (occurrence: FR)
  Receive Date: 20211220
  Receipt Date: 20211220
  Transmission Date: 20220303
  Serious: Yes (Disabling, Other)
  Sender: FDA-Public Use
  Company Number: FR-Zentiva-2021-ZT-014134

PATIENT
  Sex: Female

DRUGS (11)
  1. ESTRADIOL [Suspect]
     Active Substance: ESTRADIOL
     Indication: Hyperandrogenism
     Dosage: 1 MILLIGRAM, QD(1 TABLET FOR 20 DAYS IN A MONTH)
     Route: 065
     Dates: start: 200507, end: 2011
  2. CYPROTERONE ACETATE [Suspect]
     Active Substance: CYPROTERONE ACETATE
     Indication: Hyperandrogenism
     Dosage: 25 MILLIGRAM, QD(1/2 OF THE TABLET 7 DAYS IN A MONTH)
     Route: 048
     Dates: start: 199806, end: 2004
  3. CYPROTERONE ACETATE [Suspect]
     Active Substance: CYPROTERONE ACETATE
     Dosage: 25 MILLIGRAM, QD(1/2 OF THE TABLET 20 DAYS IN A MONTH)
     Route: 048
     Dates: start: 200507, end: 201506
  4. MIRENA [Suspect]
     Active Substance: LEVONORGESTREL
     Indication: Product used for unknown indication
     Dosage: UNK
     Route: 015
     Dates: start: 2004, end: 200507
  5. ETHINYL ESTRADIOL\LEVONORGESTREL [Suspect]
     Active Substance: ETHINYL ESTRADIOL\LEVONORGESTREL
     Indication: Hyperandrogenism
     Dosage: UNK
     Route: 065
     Dates: start: 199806, end: 1999
  6. CYPROTERONE [Suspect]
     Active Substance: CYPROTERONE
     Indication: Hyperandrogenism
     Dosage: 25 MILLIGRAM, QD(IN 1 MONTH)
     Route: 048
     Dates: start: 20111125, end: 201506
  7. DESOGESTREL\ETHINYL ESTRADIOL [Suspect]
     Active Substance: DESOGESTREL\ETHINYL ESTRADIOL
     Indication: Hyperandrogenism
     Dosage: UNK
     Route: 065
     Dates: start: 2000, end: 2004
  8. ZOMIG [Concomitant]
     Active Substance: ZOLMITRIPTAN
     Indication: Migraine
     Dosage: UNK
     Route: 065
  9. MAXALT [Concomitant]
     Active Substance: RIZATRIPTAN BENZOATE
     Indication: Migraine
     Dosage: UNK
     Route: 065
  10. KEPPRA [Concomitant]
     Active Substance: LEVETIRACETAM
     Dosage: UNK
     Route: 065
     Dates: end: 20141111
  11. OMEPRAZOLE [Concomitant]
     Active Substance: OMEPRAZOLE
     Dosage: UNK
     Route: 065

REACTIONS (2)
  - Meningioma [Recovering/Resolving]
  - Headache [Recovering/Resolving]

NARRATIVE: CASE EVENT DATE: 20140701
